FAERS Safety Report 7374399-0 (Version None)
Quarter: 2011Q1

REPORT INFORMATION
  Report Type: 
  Country: None (occurrence: None)
  Receive Date: 20110317
  Receipt Date: 20110228
  Transmission Date: 20110831
  Serious: Yes (Hospitalization)
  Sender: FDA-Public Use
  Company Number: JPI-P-014094

PATIENT
  Age: 47 Year
  Sex: Female
  Weight: 68.9467 kg

DRUGS (14)
  1. AMPHETAIMINE, DEXROAMPHETAMINE MIXED SALTS [Concomitant]
  2. XYREM [Suspect]
     Indication: NARCOLEPSY
     Dosage: ORAL; 9 GM (4.5 G, 2 IN 1 D), ORAL; 9 GM 4.5 MG, 2 IN 1 D), ORAL
     Route: 048
     Dates: start: 20101001
  3. XYREM [Suspect]
     Indication: SOMNOLENCE
     Dosage: ORAL; 9 GM (4.5 G, 2 IN 1 D), ORAL; 9 GM 4.5 MG, 2 IN 1 D), ORAL
     Route: 048
     Dates: start: 20101001
  4. XYREM [Suspect]
     Indication: NARCOLEPSY
     Dosage: ORAL; 9 GM (4.5 G, 2 IN 1 D), ORAL; 9 GM 4.5 MG, 2 IN 1 D), ORAL
     Route: 048
     Dates: end: 20110208
  5. XYREM [Suspect]
     Indication: SOMNOLENCE
     Dosage: ORAL; 9 GM (4.5 G, 2 IN 1 D), ORAL; 9 GM 4.5 MG, 2 IN 1 D), ORAL
     Route: 048
     Dates: end: 20110208
  6. XYREM [Suspect]
     Indication: NARCOLEPSY
     Dosage: ORAL; 9 GM (4.5 G, 2 IN 1 D), ORAL; 9 GM 4.5 MG, 2 IN 1 D), ORAL
     Route: 048
     Dates: start: 20110210
  7. XYREM [Suspect]
     Indication: SOMNOLENCE
     Dosage: ORAL; 9 GM (4.5 G, 2 IN 1 D), ORAL; 9 GM 4.5 MG, 2 IN 1 D), ORAL
     Route: 048
     Dates: start: 20110210
  8. FISH OIL [Concomitant]
  9. VITAMIN D [Concomitant]
  10. FOLIC ACID [Concomitant]
  11. ROSUVASTATIN CALCIUM [Concomitant]
  12. DESVENLAFAXINE [Concomitant]
  13. ARIPIPRAZOLE [Concomitant]
  14. LITHIUM [Concomitant]

REACTIONS (9)
  - PRODUCT MEASURED POTENCY ISSUE [None]
  - UTERINE POLYP [None]
  - SLEEP DISORDER [None]
  - CONDITION AGGRAVATED [None]
  - DEVICE LEAKAGE [None]
  - UTERINE LEIOMYOMA [None]
  - OVARIAN CYST [None]
  - SOMNOLENCE [None]
  - ABNORMAL DREAMS [None]
